FAERS Safety Report 13498890 (Version 1)
Quarter: 2017Q2

REPORT INFORMATION
  Report Type: Spontaneous
  Country: US (occurrence: US)
  Receive Date: 20170430
  Receipt Date: 20170430
  Transmission Date: 20170830
  Serious: Yes (Other)
  Sender: FDA-Public Use
  Company Number: None

PATIENT
  Age: 65 Year
  Sex: Male
  Weight: 89.1 kg

DRUGS (11)
  1. SINGULAIR [Concomitant]
     Active Substance: MONTELUKAST SODIUM
  2. ULORIC [Concomitant]
     Active Substance: FEBUXOSTAT
  3. TESTOSTERONE CYPIONATE INJECTION [Suspect]
     Active Substance: TESTOSTERONE CYPIONATE
     Indication: BLOOD TESTOSTERONE NORMAL
     Dosage: QUANTITY:1 INJECTION(S);OTHER FREQUENCY:EVERY 2 WEEKS;?
     Route: 030
     Dates: start: 20150601
  4. METFORMIN [Concomitant]
     Active Substance: METFORMIN HYDROCHLORIDE
  5. ZOLPIDEM [Concomitant]
     Active Substance: ZOLPIDEM\ZOLPIDEM TARTRATE
  6. PLAQUENIL [Concomitant]
     Active Substance: HYDROXYCHLOROQUINE SULFATE
  7. CLONAZEPAM. [Concomitant]
     Active Substance: CLONAZEPAM
  8. COLCHISINE [Concomitant]
  9. PRAVASTATIN. [Concomitant]
     Active Substance: PRAVASTATIN
  10. OMEPRAZOLE. [Concomitant]
     Active Substance: OMEPRAZOLE
  11. TOPIRAMATE. [Concomitant]
     Active Substance: TOPIRAMATE

REACTIONS (4)
  - Abnormal behaviour [None]
  - Frustration tolerance decreased [None]
  - Aggression [None]
  - Anger [None]

NARRATIVE: CASE EVENT DATE: 20170429
